FAERS Safety Report 12355432 (Version 1)
Quarter: 2016Q2

REPORT INFORMATION
  Report Type: Spontaneous
  Country: US (occurrence: None)
  Receive Date: 20160510
  Receipt Date: 20160510
  Transmission Date: 20160815
  Serious: No
  Sender: FDA-Public Use
  Company Number: None

PATIENT
  Age: 38 Year
  Sex: Female
  Weight: 117.03 kg

DRUGS (7)
  1. VITAMIN D [Concomitant]
     Active Substance: CHOLECALCIFEROL
  2. CEFDINIR. [Concomitant]
     Active Substance: CEFDINIR
  3. LEVOFLOXACIN, 750 MG [Suspect]
     Active Substance: LEVOFLOXACIN
     Indication: PNEUMONIA
     Route: 048
     Dates: start: 20160425, end: 20160503
  4. PREDNISONE. [Concomitant]
     Active Substance: PREDNISONE
  5. IBUPROFEN. [Concomitant]
     Active Substance: IBUPROFEN
  6. PHENTERMINE. [Concomitant]
     Active Substance: PHENTERMINE
  7. ALPRAZOLAM. [Concomitant]
     Active Substance: ALPRAZOLAM

REACTIONS (4)
  - Muscle tightness [None]
  - Joint swelling [None]
  - Joint effusion [None]
  - Muscular weakness [None]

NARRATIVE: CASE EVENT DATE: 20160503
